FAERS Safety Report 22989963 (Version 2)
Quarter: 2024Q4

REPORT INFORMATION
  Report Type: Spontaneous
  Country: US (occurrence: US)
  Receive Date: 20230927
  Receipt Date: 20241016
  Transmission Date: 20250114
  Serious: No
  Sender: CELLTRION
  Company Number: US-CELLTRION INC.-2023US002239

PATIENT

DRUGS (1)
  1. INFLECTRA [Suspect]
     Active Substance: INFLIXIMAB-DYYB
     Indication: Ankylosing spondylitis
     Dosage: UNKNOWN DOSAGE RECEIVED BY INFUSION
     Route: 065
     Dates: start: 20221214

REACTIONS (6)
  - Chemical burn of skin [Unknown]
  - Therapy interrupted [Unknown]
  - Product dispensing issue [Unknown]
  - Product distribution issue [Unknown]
  - Product substitution issue [Unknown]
  - Product supply issue [Unknown]

NARRATIVE: CASE EVENT DATE: 20230126
